FAERS Safety Report 10052637 (Version 1)
Quarter: 2014Q2

REPORT INFORMATION
  Report Type: Spontaneous
  Country: JP (occurrence: JP)
  Receive Date: 20140402
  Receipt Date: 20140402
  Transmission Date: 20141212
  Serious: Yes (Death, Other)
  Sender: FDA-Public Use
  Company Number: JP-CELGENEUS-087-20785-14034177

PATIENT
  Age: 77 Year
  Sex: Male

DRUGS (3)
  1. THALOMID [Suspect]
     Indication: MYELOFIBROSIS
     Route: 048
  2. PREDNISONE [Suspect]
     Indication: MYELOFIBROSIS
     Route: 065
  3. PREDNISONE [Suspect]
     Indication: FACTOR VIII DEFICIENCY

REACTIONS (6)
  - Pneumocystis jirovecii pneumonia [Fatal]
  - Haemorrhage subcutaneous [Unknown]
  - Haemorrhage [Unknown]
  - Respiratory failure [Recovering/Resolving]
  - Haemorrhage [Unknown]
  - Acute myeloid leukaemia [Unknown]
